FAERS Safety Report 4505436-6 (Version None)
Quarter: 2004Q4

REPORT INFORMATION
  Report Type: 
  Country: None (occurrence: None)
  Receive Date: 20041116
  Receipt Date: 20041104
  Transmission Date: 20050328
  Serious: Yes (Hospitalization)
  Sender: FDA-Public Use
  Company Number: STA-AE-04-MTX-543

PATIENT
  Age: 54 Year
  Sex: Female

DRUGS (10)
  1. RHEUMATREX [Suspect]
     Dosage: SEE IMAGE
     Route: 048
     Dates: start: 20020404, end: 20030814
  2. RHEUMATREX [Suspect]
     Dosage: SEE IMAGE
     Route: 048
     Dates: start: 20040814
  3. REMICADE [Suspect]
     Indication: RHEUMATOID ARTHRITIS
     Dosage: SEE IMAGE
     Route: 042
     Dates: start: 20040526, end: 20040526
  4. REMICADE [Suspect]
     Indication: RHEUMATOID ARTHRITIS
     Dosage: SEE IMAGE
     Route: 042
     Dates: start: 20040609, end: 20040609
  5. REMICADE [Suspect]
     Indication: RHEUMATOID ARTHRITIS
     Dosage: SEE IMAGE
     Route: 042
     Dates: start: 20040708, end: 20040708
  6. PREDNISOLONE [Concomitant]
  7. METHOTREXATE SODIUM [Concomitant]
  8. LOXONIN (LOXOPROFEN SODIUM) [Concomitant]
  9. ALENDRONATE SODIUM [Concomitant]
  10. MUCOSTA (REBAMIPIDE) [Concomitant]

REACTIONS (1)
  - ARTHRITIS [None]
